FAERS Safety Report 7053292-7 (Version None)
Quarter: 2010Q4

REPORT INFORMATION
  Report Type: 
  Country: None (occurrence: None)
  Receive Date: 20101020
  Receipt Date: 20101012
  Transmission Date: 20110411
  Serious: Yes (Hospitalization, Other)
  Sender: FDA-Public Use
  Company Number: US-NOVOPROD-310498

PATIENT
  Sex: Male
  Weight: 121.9 kg

DRUGS (3)
  1. VICTOZA [Suspect]
     Indication: TYPE 2 DIABETES MELLITUS
     Dosage: 0.6 MG, QD
     Route: 058
     Dates: start: 20100401
  2. VICTOZA [Suspect]
     Dosage: 1.2 MG, QD
     Route: 058
  3. VICTOZA [Suspect]
     Dosage: 1.8 MG, QD
     Route: 058
     Dates: end: 20100618

REACTIONS (7)
  - ALANINE AMINOTRANSFERASE INCREASED [None]
  - ASPARTATE AMINOTRANSFERASE INCREASED [None]
  - BLOOD BILIRUBIN INCREASED [None]
  - CHOLECYSTITIS ACUTE [None]
  - GAMMA-GLUTAMYLTRANSFERASE INCREASED [None]
  - PANCREATITIS ACUTE [None]
  - WEIGHT INCREASED [None]
